FAERS Safety Report 12335484 (Version 1)
Quarter: 2016Q2

REPORT INFORMATION
  Report Type: Spontaneous
  Country: FR (occurrence: FR)
  Receive Date: 20160504
  Receipt Date: 20160504
  Transmission Date: 20160815
  Serious: Yes (Hospitalization, Other)
  Sender: FDA-Public Use
  Company Number: FR-009507513-1605FRA000855

PATIENT
  Sex: Male

DRUGS (4)
  1. SOVALDI [Concomitant]
     Active Substance: SOFOSBUVIR
     Indication: HEPATITIS C
     Dosage: 40 MG, QD
     Dates: start: 20140916, end: 20150115
  2. REBETOL [Suspect]
     Active Substance: RIBAVIRIN
     Indication: HEPATITIS C
     Dosage: 600 MG, BID
     Route: 048
     Dates: start: 20140916, end: 20141219
  3. DAKLINZA [Concomitant]
     Active Substance: DACLATASVIR
     Indication: HEPATITIS C
     Dosage: 60 MG, QD
     Dates: start: 20140916, end: 20150115
  4. PREVISCAN [Concomitant]
     Active Substance: FLUINDIONE
     Indication: CARDIOMYOPATHY
     Dosage: 20 MG, QD
     Dates: start: 1994

REACTIONS (9)
  - Condition aggravated [Unknown]
  - Hepatic failure [Unknown]
  - Gastrointestinal angiodysplasia [Unknown]
  - Jaundice [Unknown]
  - Ascites [Unknown]
  - Acute kidney injury [Unknown]
  - Cardiac failure [Unknown]
  - Anaemia [Unknown]
  - Pleural effusion [Unknown]
